FAERS Safety Report 4348031-4 (Version None)
Quarter: 2004Q2

REPORT INFORMATION
  Report Type: 
  Country: None (occurrence: None)
  Receive Date: 20040422
  Receipt Date: 20040406
  Transmission Date: 20050107
  Serious: Yes (Other)
  Sender: FDA-Public Use
  Company Number: USA040363586

PATIENT
  Age: 7 Year
  Sex: Male
  Weight: 17 kg

DRUGS (3)
  1. STRATTERA [Suspect]
     Indication: ATTENTION DEFICIT/HYPERACTIVITY DISORDER
     Dosage: 25 MG DAY
     Dates: start: 20020101
  2. SYNTHROID [Concomitant]
  3. PERIACTIN [Concomitant]

REACTIONS (7)
  - ABNORMAL SLEEP-RELATED EVENT [None]
  - BRAIN SCAN ABNORMAL [None]
  - CYANOSIS [None]
  - DEHYDRATION [None]
  - HEADACHE [None]
  - LOSS OF CONSCIOUSNESS [None]
  - TONIC CONVULSION [None]
